FAERS Safety Report 17926455 (Version 1)
Quarter: 2020Q2

REPORT INFORMATION
  Report Type: Spontaneous
  Country: US (occurrence: US)
  Receive Date: 20200623
  Receipt Date: 20200623
  Transmission Date: 20200714
  Serious: No
  Sender: FDA-Public Use
  Company Number: US-INCYTE CORPORATION-2020IN005665

PATIENT

DRUGS (1)
  1. JAKAFI [Suspect]
     Active Substance: RUXOLITINIB
     Dosage: 15 MILLIGRAM, BID
     Route: 048
     Dates: start: 201908

REACTIONS (6)
  - Depression [Unknown]
  - Confusional state [Unknown]
  - Decreased activity [Unknown]
  - Anxiety [Unknown]
  - Disease progression [Unknown]
  - Feeling abnormal [Unknown]
